FAERS Safety Report 7083131-X (Version None)
Quarter: 2010Q4

REPORT INFORMATION
  Report Type: 
  Country: None (occurrence: None)
  Receive Date: 20101104
  Receipt Date: 20101029
  Transmission Date: 20110411
  Serious: Yes (Hospitalization, Other)
  Sender: FDA-Public Use
  Company Number: US-BAXTER-2010BH026792

PATIENT
  Age: 47 Year
  Sex: Female

DRUGS (8)
  1. FENTANYL CITRATE [Suspect]
     Indication: ANAESTHESIA
     Route: 042
     Dates: start: 20100929, end: 20100929
  2. FENTANYL CITRATE [Suspect]
     Indication: CENTRAL VENOUS CATHETERISATION
     Route: 042
     Dates: start: 20100929, end: 20100929
  3. PANHEMATIN [Suspect]
     Indication: PORPHYRIA ACUTE
     Route: 042
     Dates: start: 20100401
  4. PANHEMATIN [Suspect]
     Route: 042
     Dates: start: 20100601
  5. PANHEMATIN [Suspect]
     Route: 065
     Dates: start: 20100929
  6. PANHEMATIN [Suspect]
     Route: 042
     Dates: start: 20100701, end: 20100801
  7. PROPOFOL [Suspect]
     Indication: ANAESTHESIA
     Route: 042
     Dates: start: 20100929, end: 20100929
  8. VERSED [Suspect]
     Indication: ANAESTHESIA
     Route: 042
     Dates: start: 20100929, end: 20100929

REACTIONS (4)
  - CONDITION AGGRAVATED [None]
  - DRUG ERUPTION [None]
  - DRUG INTERACTION [None]
  - PORPHYRIA ACUTE [None]
